FAERS Safety Report 7047070-2 (Version None)
Quarter: 2010Q4

REPORT INFORMATION
  Report Type: 
  Country: None (occurrence: None)
  Receive Date: 20101015
  Receipt Date: 20101002
  Transmission Date: 20110411
  Serious: Yes (Death, Other)
  Sender: FDA-Public Use
  Company Number: CO-GENZYME-CLOF-1001247

PATIENT
  Sex: Male
  Weight: 15 kg

DRUGS (10)
  1. CLOLAR [Suspect]
     Indication: ACUTE LYMPHOCYTIC LEUKAEMIA
     Dosage: 52 MG/M2, QDX5
     Route: 042
     Dates: start: 20090801, end: 20090805
  2. CYCLOPHOSPHAMIDE [Suspect]
     Indication: ACUTE LYMPHOCYTIC LEUKAEMIA
     Dosage: 400 MG/M2, QDX5
     Route: 042
     Dates: start: 20090801, end: 20090805
  3. ETOPOSIDE [Suspect]
     Indication: ACUTE LYMPHOCYTIC LEUKAEMIA
     Dosage: 90 MG/M2, QDX5
     Route: 042
     Dates: start: 20090801, end: 20090805
  4. ALLOPURINOL [Concomitant]
     Indication: PREMEDICATION
  5. ALUMINUM HYDROXIDE GEL [Concomitant]
     Indication: PREMEDICATION
  6. CALCIUM GLUCONATE [Concomitant]
     Indication: PREMEDICATION
  7. MEROPENEM [Concomitant]
     Indication: PROPHYLAXIS
  8. FLUCONAZOLE [Concomitant]
     Indication: PROPHYLAXIS
  9. ACYCLOVIR [Concomitant]
     Indication: PROPHYLAXIS
  10. VANCOMYCIN [Concomitant]
     Indication: PROPHYLAXIS

REACTIONS (3)
  - BONE MARROW FAILURE [None]
  - CEREBRAL HAEMORRHAGE [None]
  - MALIGNANT NEOPLASM PROGRESSION [None]
